FAERS Safety Report 24807699 (Version 1)
Quarter: 2025Q1

REPORT INFORMATION
  Report Type: Report from Study
  Country: CN (occurrence: CN)
  Receive Date: 20250105
  Receipt Date: 20250105
  Transmission Date: 20250409
  Serious: Yes (Hospitalization)
  Sender: ROCHE
  Company Number: CN-ROCHE-10000168995

PATIENT
  Age: 79 Year
  Sex: Female

DRUGS (1)
  1. VABYSMO [Suspect]
     Active Substance: FARICIMAB-SVOA
     Indication: Age-related macular degeneration
     Route: 031
     Dates: start: 20240808

REACTIONS (4)
  - Drug ineffective [Unknown]
  - Acne [Recovering/Resolving]
  - Dermatitis allergic [Recovering/Resolving]
  - Abdominal pain [Recovered/Resolved]

NARRATIVE: CASE EVENT DATE: 20240901
